FAERS Safety Report 8216577-4 (Version None)
Quarter: 2012Q1

REPORT INFORMATION
  Report Type: 
  Country: None (occurrence: None)
  Receive Date: 20120316
  Receipt Date: 20120309
  Transmission Date: 20120608
  Serious: Yes (Other)
  Sender: FDA-Public Use
  Company Number: US-ASTRAZENECA-2011SE74427

PATIENT
  Age: 63 Year
  Sex: Male
  Weight: 86.4 kg

DRUGS (10)
  1. CRESTOR [Suspect]
     Route: 048
  2. LISINOPRIL [Suspect]
  3. MULTI-VITAMIN [Concomitant]
     Dosage: DAILY
  4. VITAMIN E [Concomitant]
     Dosage: DAILY
  5. FISH OIL [Concomitant]
     Dosage: DAILY
  6. VITAMIN D [Concomitant]
     Dosage: DAILY
  7. METOPROLOL SUCCINATE [Suspect]
  8. ASPIRIN [Concomitant]
  9. CRESTOR [Suspect]
     Route: 048
  10. PROBIOTIC [Concomitant]
     Dosage: DAILY

REACTIONS (31)
  - PULMONARY VASCULAR DISORDER [None]
  - ARTERIOSCLEROSIS CORONARY ARTERY [None]
  - PERIPHERAL COLDNESS [None]
  - BLOOD POTASSIUM INCREASED [None]
  - BACK PAIN [None]
  - AORTIC ANEURYSM [None]
  - TESTICULAR PAIN [None]
  - HYPERTENSION [None]
  - DECREASED APPETITE [None]
  - OSTEOARTHRITIS [None]
  - ANXIETY [None]
  - PAIN IN EXTREMITY [None]
  - ARTHRITIS [None]
  - ABDOMINAL PAIN [None]
  - INTERMITTENT CLAUDICATION [None]
  - MALIGNANT MELANOMA [None]
  - CHRONIC OBSTRUCTIVE PULMONARY DISEASE [None]
  - OROPHARYNGEAL PAIN [None]
  - DIARRHOEA [None]
  - TOBACCO USER [None]
  - BLOOD CHOLESTEROL INCREASED [None]
  - CORONARY ARTERY DISEASE [None]
  - SKIN DISCOLOURATION [None]
  - HYPERLIPIDAEMIA [None]
  - DRUG DOSE OMISSION [None]
  - GROIN PAIN [None]
  - HERNIA [None]
  - POLYP [None]
  - GENITAL HYPOAESTHESIA [None]
  - PERIPHERAL VASCULAR DISORDER [None]
  - CONSTIPATION [None]
